FAERS Safety Report 6260337-0 (Version None)
Quarter: 2009Q3

REPORT INFORMATION
  Report Type: 
  Country: None (occurrence: None)
  Receive Date: 20090708
  Receipt Date: 20090625
  Transmission Date: 20100115
  Serious: Yes (Other)
  Sender: FDA-Public Use
  Company Number: PHHY2009DE27113

PATIENT
  Sex: Male

DRUGS (9)
  1. LEPONEX [Suspect]
     Dosage: 12.5 MG, TID
     Route: 048
  2. LEPONEX [Suspect]
     Dosage: UNK
  3. METFORMIN HCL [Concomitant]
  4. LACTULOSE [Concomitant]
  5. NOVALGIN [Concomitant]
  6. BASOCEF [Concomitant]
  7. METRONIDAZOLE HCL [Concomitant]
  8. PARACETAMOL [Concomitant]
  9. LOESNESIUM [Concomitant]

REACTIONS (2)
  - ILEUS [None]
  - SURGERY [None]
